FAERS Safety Report 8162851-X (Version None)
Quarter: 2012Q1

REPORT INFORMATION
  Report Type: 
  Country: None (occurrence: None)
  Receive Date: 20120224
  Receipt Date: 20120215
  Transmission Date: 20120608
  Serious: No
  Sender: FDA-Public Use
  Company Number: US-JNJFOC-20120208420

PATIENT
  Sex: Female

DRUGS (2)
  1. DURAGESIC-100 [Suspect]
     Indication: NECK INJURY
     Route: 062
     Dates: start: 20070101
  2. DURAGESIC-100 [Suspect]
     Route: 062
     Dates: start: 20111101

REACTIONS (2)
  - WEIGHT FLUCTUATION [None]
  - DRUG ADMINISTERED AT INAPPROPRIATE SITE [None]
